FAERS Safety Report 22246460 (Version 2)
Quarter: 2023Q2

REPORT INFORMATION
  Report Type: Spontaneous
  Country: IN (occurrence: IN)
  Receive Date: 20230424
  Receipt Date: 20230503
  Transmission Date: 20230722
  Serious: Yes (Other)
  Sender: FDA-Public Use
  Company Number: IN-GILEAD-2023-0624846

PATIENT
  Age: 46 Year
  Sex: Female

DRUGS (4)
  1. VIREAD [Suspect]
     Active Substance: TENOFOVIR DISOPROXIL FUMARATE
     Indication: HIV infection
     Dosage: 300 MG
     Route: 065
  2. ABACAVIR [Concomitant]
     Active Substance: ABACAVIR
     Dosage: 600 MG
  3. LAMIVUDINE [Concomitant]
     Active Substance: LAMIVUDINE
     Dosage: 300 MG
  4. EFAVIRENZ [Concomitant]
     Active Substance: EFAVIRENZ
     Dosage: 300 MG

REACTIONS (2)
  - Hypophosphataemic osteomalacia [Recovering/Resolving]
  - Renal tubular acidosis [Unknown]
